FAERS Safety Report 9874658 (Version 6)
Quarter: 2015Q1

REPORT INFORMATION
  Report Type: Report from Study
  Country: CA (occurrence: CA)
  Receive Date: 20140206
  Receipt Date: 20150226
  Transmission Date: 20150721
  Serious: Yes (Hospitalization, Other)
  Sender: FDA-Public Use
  Company Number: PHHY2014CA012981

PATIENT
  Age: 83 Year
  Sex: Male

DRUGS (1)
  1. EXJADE [Suspect]
     Active Substance: DEFERASIROX
     Indication: MYELODYSPLASTIC SYNDROME
     Dosage: UNK
     Route: 048
     Dates: start: 201206

REACTIONS (6)
  - Lower limb fracture [Unknown]
  - Hip fracture [Unknown]
  - Femur fracture [Unknown]
  - General physical health deterioration [Unknown]
  - Renal disorder [Unknown]
  - Blood iron increased [Unknown]

NARRATIVE: CASE EVENT DATE: 201312
